FAERS Safety Report 15880003 (Version 1)
Quarter: 2019Q1

REPORT INFORMATION
  Report Type: Spontaneous
  Country: US (occurrence: US)
  Receive Date: 20190128
  Receipt Date: 20190128
  Transmission Date: 20190417
  Serious: Yes (Hospitalization, Other)
  Sender: FDA-Public Use
  Company Number: US-BAXTER-2019BAX001626

PATIENT
  Age: 62 Year
  Sex: Female
  Weight: 117.93 kg

DRUGS (5)
  1. ADRIAMYCIN [Suspect]
     Active Substance: DOXORUBICIN HYDROCHLORIDE
     Indication: BREAST CANCER
     Route: 065
     Dates: start: 2011
  2. AROMASIN [Suspect]
     Active Substance: EXEMESTANE
     Indication: BREAST CANCER
     Dosage: 25 MG TABLET BY MOUTH ONCE DAILY IN THE MORNING
     Route: 048
     Dates: start: 2016, end: 20170815
  3. TAXOL [Suspect]
     Active Substance: PACLITAXEL
     Indication: BREAST CANCER
     Route: 065
     Dates: start: 2011
  4. CYCLOPHOSPHAMIDE FOR INJECTION, USP [Suspect]
     Active Substance: CYCLOPHOSPHAMIDE
     Indication: BREAST CANCER
     Route: 065
     Dates: start: 2011
  5. ARIMIDEX [Suspect]
     Active Substance: ANASTROZOLE
     Indication: BREAST CANCER
     Dosage: FOR 5 YEARS, 10 G BY MOUTH DAILY IN THE MORNING
     Route: 048
     Dates: end: 2016

REACTIONS (6)
  - Post procedural pulmonary embolism [Unknown]
  - Breast cancer recurrent [Unknown]
  - Unevaluable event [Unknown]
  - Metastases to bone [Unknown]
  - Metastatic neoplasm [Unknown]
  - Neuropathy peripheral [Not Recovered/Not Resolved]

NARRATIVE: CASE EVENT DATE: 2011
